FAERS Safety Report 7518389-3 (Version None)
Quarter: 2011Q2

REPORT INFORMATION
  Report Type: 
  Country: None (occurrence: None)
  Receive Date: 20110602
  Receipt Date: 20110527
  Transmission Date: 20111010
  Serious: Yes (Hospitalization, Other)
  Sender: FDA-Public Use
  Company Number: BR-ABBOTT-11P-020-0728872-00

PATIENT
  Sex: Female
  Weight: 60 kg

DRUGS (8)
  1. LOSARTAN POTASSIUM [Concomitant]
     Indication: BLOOD PRESSURE
     Route: 048
  2. CLONAZEPAM [Concomitant]
     Indication: INSOMNIA
     Route: 048
  3. SIMVASTATIN [Concomitant]
     Indication: BLOOD CHOLESTEROL INCREASED
     Route: 048
  4. ENALAPRIL MALEATE [Concomitant]
     Indication: BLOOD PRESSURE
     Route: 048
  5. CLORANA [Concomitant]
     Indication: BLOOD PRESSURE
     Route: 048
  6. KALETRA [Suspect]
     Indication: PROPHYLAXIS AGAINST HIV INFECTION
     Route: 048
  7. PROPRANOLOL [Concomitant]
     Indication: BLOOD PRESSURE
     Route: 048
     Dates: end: 20110525
  8. SUSTRATE [Concomitant]
     Indication: VASOCONSTRICTION
     Route: 048

REACTIONS (1)
  - CEREBROVASCULAR ACCIDENT [None]
